FAERS Safety Report 6060810-4 (Version None)
Quarter: 2009Q1

REPORT INFORMATION
  Report Type: 
  Country: None (occurrence: None)
  Receive Date: 20090202
  Receipt Date: 20090122
  Transmission Date: 20090719
  Serious: Yes (Other)
  Sender: FDA-Public Use
  Company Number: PHHY2008JP32032

PATIENT
  Sex: Female
  Weight: 53 kg

DRUGS (5)
  1. ZOMETA [Suspect]
     Indication: BREAST CANCER
     Dosage: 4 MG (EVERY 4 WEEKS)
     Route: 042
     Dates: start: 20060401, end: 20080906
  2. ZOMETA [Suspect]
     Dosage: 4 MG, QMO
     Route: 042
     Dates: start: 20081113, end: 20081113
  3. ZOMETA [Suspect]
     Dosage: 4 MG
     Dates: start: 20080821, end: 20080906
  4. BISPHONAL [Suspect]
     Indication: METASTASES TO BONE
     Dosage: 10 MG, UNK
     Route: 042
     Dates: start: 20041001, end: 20060301
  5. DOCETAXEL [Concomitant]
     Dosage: UNK
     Dates: start: 20080609

REACTIONS (5)
  - DENTAL CARIES [None]
  - ORAL DISCOMFORT [None]
  - PERIOSTITIS [None]
  - TOOTH EXTRACTION [None]
  - TOOTHACHE [None]
